FAERS Safety Report 20471253 (Version 1)
Quarter: 2022Q1

REPORT INFORMATION
  Report Type: Report from Study
  Country: US (occurrence: US)
  Receive Date: 20220214
  Receipt Date: 20220214
  Transmission Date: 20220423
  Serious: No
  Sender: FDA-Public Use
  Company Number: US-TG THERAPEUTICS INC.-TGT002250

PATIENT
  Sex: Male

DRUGS (1)
  1. UKONIQ [Suspect]
     Active Substance: UMBRALISIB TOSYLATE
     Indication: Follicular lymphoma
     Dosage: 600 MILLIGRAM, QD WITH FOOD
     Route: 048
     Dates: start: 20210826

REACTIONS (1)
  - Generalised oedema [Not Recovered/Not Resolved]
